FAERS Safety Report 20556538 (Version 4)
Quarter: 2022Q3

REPORT INFORMATION
  Report Type: Spontaneous
  Country: ES (occurrence: ES)
  Receive Date: 20220307
  Receipt Date: 20220908
  Transmission Date: 20221027
  Serious: Yes (Hospitalization, Other)
  Sender: FDA-Public Use
  Company Number: ES-SUN PHARMACEUTICAL INDUSTRIES LTD-2022RR-327960

PATIENT
  Age: 77 Year
  Sex: Male

DRUGS (9)
  1. MORPHINE [Suspect]
     Active Substance: MORPHINE
     Indication: Withdrawal syndrome
     Dosage: UNK
     Route: 042
  2. MORPHINE [Suspect]
     Active Substance: MORPHINE
     Dosage: UNK
     Route: 048
  3. OLANZAPINE [Suspect]
     Active Substance: OLANZAPINE
     Indication: Confusional state
     Dosage: UNK
     Route: 065
  4. HALOPERIDOL [Suspect]
     Active Substance: HALOPERIDOL
     Indication: Confusional state
     Dosage: UNK
     Route: 065
  5. QUETIAPINE [Suspect]
     Active Substance: QUETIAPINE
     Indication: Confusional state
     Dosage: UNK
     Route: 065
  6. CLONIDINE [Suspect]
     Active Substance: CLONIDINE
     Indication: Confusional state
     Dosage: UNK
     Route: 065
  7. DEXMEDETOMIDINE [Suspect]
     Active Substance: DEXMEDETOMIDINE
     Indication: Confusional state
     Dosage: UNK
     Route: 065
  8. MORPHINE [Suspect]
     Active Substance: MORPHINE
     Indication: Infection
     Dosage: 7.997 MILLIGRAM, DAILY
     Route: 037
  9. MORPHINE [Suspect]
     Active Substance: MORPHINE
     Dosage: 4.9 MILLIGRAM, DAILY
     Route: 037

REACTIONS (19)
  - Postoperative wound infection [Unknown]
  - Confusional state [Unknown]
  - Withdrawal syndrome [Unknown]
  - Altered state of consciousness [Unknown]
  - Respiratory failure [Unknown]
  - Toxicity to various agents [Unknown]
  - Drug intolerance [Unknown]
  - Somnolence [Unknown]
  - Drug ineffective [Unknown]
  - Hypercapnia [Unknown]
  - Postoperative wound infection [Unknown]
  - Vomiting [Unknown]
  - Blood pressure increased [Unknown]
  - Decreased appetite [Unknown]
  - Somnolence [Unknown]
  - Anterograde amnesia [Unknown]
  - Restlessness [Unknown]
  - Muscle spasms [Unknown]
  - Hallucination, visual [Unknown]
